FAERS Safety Report 16224297 (Version 1)
Quarter: 2019Q2

REPORT INFORMATION
  Report Type: Spontaneous
  Country: US (occurrence: US)
  Receive Date: 20190422
  Receipt Date: 20190422
  Transmission Date: 20190711
  Serious: No
  Sender: FDA-Public Use
  Company Number: US-BIOMARINAP-US-2019-123107

PATIENT
  Age: 41 Year
  Sex: Male
  Weight: 58 kg

DRUGS (3)
  1. SINEMET [Concomitant]
     Active Substance: CARBIDOPA\LEVODOPA
     Indication: DYSTONIA
     Dosage: UNK, TID
     Route: 048
     Dates: start: 20181114
  2. PALYNZIQ [Suspect]
     Active Substance: PEGVALIASE-PQPZ
     Dosage: 10 MILLIGRAM
     Route: 058
     Dates: start: 20190222
  3. PALYNZIQ [Suspect]
     Active Substance: PEGVALIASE-PQPZ
     Indication: PHENYLKETONURIA
     Dosage: 10 MILLIGRAM, QD
     Route: 058

REACTIONS (8)
  - Joint stiffness [Recovering/Resolving]
  - Neck pain [Recovering/Resolving]
  - Pain in jaw [Recovering/Resolving]
  - Arthralgia [Recovering/Resolving]
  - Pain in extremity [Recovering/Resolving]
  - Mastication disorder [Recovering/Resolving]
  - Musculoskeletal stiffness [Recovering/Resolving]
  - Muscle strain [Recovering/Resolving]

NARRATIVE: CASE EVENT DATE: 20190413
